FAERS Safety Report 9712290 (Version 2)
Quarter: 2013Q4

REPORT INFORMATION
  Report Type: Spontaneous
  Country: US (occurrence: US)
  Receive Date: 20131126
  Receipt Date: 20131126
  Transmission Date: 20140711
  Serious: No
  Sender: FDA-Public Use
  Company Number: US-BRISTOL-MYERS SQUIBB COMPANY-18858092

PATIENT
  Age: 56 Year
  Sex: Male
  Weight: 105.67 kg

DRUGS (10)
  1. BYDUREON [Suspect]
     Indication: TYPE 2 DIABETES MELLITUS
     Route: 058
  2. PIOGLITAZONE HCL [Concomitant]
  3. GLYBURIDE [Concomitant]
     Dosage: 1DF=ONE AND HALF TABS?5MG
     Route: 048
  4. ACTOS [Concomitant]
  5. FOSINOPRIL SODIUM [Concomitant]
     Route: 048
  6. SYNTHROID [Concomitant]
     Route: 048
  7. CONCERTA [Concomitant]
  8. LIPOIC ACID [Concomitant]
  9. ASPIRIN [Concomitant]
  10. VITAMIN D [Concomitant]

REACTIONS (4)
  - Injection site nodule [Recovering/Resolving]
  - Injection site pruritus [Recovered/Resolved]
  - Nausea [Recovered/Resolved]
  - Insomnia [Recovered/Resolved]
